FAERS Safety Report 14757832 (Version 3)
Quarter: 2018Q2

REPORT INFORMATION
  Report Type: Spontaneous
  Country: CZ (occurrence: CZ)
  Receive Date: 20180413
  Receipt Date: 20180518
  Transmission Date: 20180711
  Serious: Yes (Death, Other)
  Sender: FDA-Public Use
  Company Number: CZ-B.I. PHARMACEUTICALS,INC./RIDGEFIELD-2018-BI-020071

PATIENT
  Age: 70 Year
  Sex: Female

DRUGS (1)
  1. GILOTRIF [Suspect]
     Active Substance: AFATINIB
     Indication: NON-SMALL CELL LUNG CANCER
     Route: 048
     Dates: start: 201710, end: 201803

REACTIONS (4)
  - Sepsis [Fatal]
  - Malignant neoplasm progression [Fatal]
  - Pulmonary embolism [Fatal]
  - Renal failure [Fatal]

NARRATIVE: CASE EVENT DATE: 201803
